FAERS Safety Report 9228391 (Version 1)
Quarter: 2013Q2

REPORT INFORMATION
  Report Type: Report from Study
  Country: US (occurrence: US)
  Receive Date: 20130412
  Receipt Date: 20130412
  Transmission Date: 20140414
  Serious: Yes (Other)
  Sender: FDA-Public Use
  Company Number: US-ACTELION-A-NJ2013-81651

PATIENT
  Age: 65 Year
  Sex: Female

DRUGS (2)
  1. VELETRI [Suspect]
     Indication: PULMONARY ARTERIAL HYPERTENSION
     Dosage: 47 NG/KG, PER MIN
     Route: 041
     Dates: start: 20101220
  2. ADCIRCA [Suspect]

REACTIONS (4)
  - Stent placement [Unknown]
  - Catheter site erythema [Unknown]
  - Headache [Unknown]
  - Rash [Unknown]
